FAERS Safety Report 25912626 (Version 1)
Quarter: 2025Q4

REPORT INFORMATION
  Report Type: Spontaneous
  Country: US (occurrence: US)
  Receive Date: 20251013
  Receipt Date: 20251013
  Transmission Date: 20260118
  Serious: Yes (Other)
  Sender: STRIDES
  Company Number: US-STRIDES ARCOLAB LIMITED-2025SP012758

PATIENT
  Age: 49 Year
  Sex: Female

DRUGS (5)
  1. TACROLIMUS [Suspect]
     Active Substance: TACROLIMUS
     Indication: Chronic kidney disease
     Dosage: UNK
     Route: 065
  2. PREDNISOLONE [Suspect]
     Active Substance: PREDNISOLONE
     Indication: Focal segmental glomerulosclerosis
     Dosage: UNK
     Route: 065
  3. PREDNISOLONE [Suspect]
     Active Substance: PREDNISOLONE
     Indication: Nephrotic syndrome
  4. PREDNISOLONE [Suspect]
     Active Substance: PREDNISOLONE
     Indication: Chronic kidney disease
  5. PREDNISOLONE [Suspect]
     Active Substance: PREDNISOLONE
     Indication: Hypoalbuminaemia

REACTIONS (3)
  - Disease progression [Unknown]
  - Proteinuria [Recovering/Resolving]
  - Off label use [Unknown]
